FAERS Safety Report 8818818 (Version 1)
Quarter: 2012Q4

REPORT INFORMATION
  Report Type: 
  Country: US (occurrence: US)
  Receive Date: 20121001
  Receipt Date: 20121001
  Transmission Date: 20130627
  Serious: Yes (Death)
  Sender: FDA-Public Use
  Company Number: PHHY2012US084914

PATIENT
  Age: 47 Year
  Sex: Male

DRUGS (5)
  1. CICLOSPORIN [Suspect]
     Route: 042
  2. CICLOSPORIN [Suspect]
     Route: 048
  3. EQUINE ANTITHYMOCYTE GLOBULIN [Concomitant]
     Dosage: 15 mg/kg, UNK
  4. AZATHIOPRINE [Concomitant]
     Dosage: 1-3 mg/kg/day
  5. METHYLPREDNISOLONE [Concomitant]

REACTIONS (1)
  - Bronchopulmonary aspergillosis [Fatal]
